FAERS Safety Report 8304444-7 (Version None)
Quarter: 2012Q2

REPORT INFORMATION
  Report Type: 
  Country: None (occurrence: None)
  Receive Date: 20120423
  Receipt Date: 20120412
  Transmission Date: 20120825
  Serious: Yes (Hospitalization)
  Sender: FDA-Public Use
  Company Number: US-VERTEX PHARMACEUTICALS INC.-AE-2012-002881

PATIENT
  Sex: Male

DRUGS (4)
  1. PEGASYS [Concomitant]
     Indication: HEPATITIS C
     Dates: start: 20111208, end: 20120110
  2. HUMIRA [Concomitant]
     Route: 058
  3. INCIVEK [Suspect]
     Indication: HEPATITIS C
     Route: 048
     Dates: start: 20111208, end: 20120110
  4. RIBAVIRIN [Concomitant]
     Indication: HEPATITIS C
     Route: 048
     Dates: start: 20111208, end: 20120110

REACTIONS (2)
  - ANAEMIA [None]
  - JOINT SWELLING [None]
